FAERS Safety Report 8614852-2 (Version None)
Quarter: 2012Q3

REPORT INFORMATION
  Report Type: 
  Country: None (occurrence: None)
  Receive Date: 20120823
  Receipt Date: 20120508
  Transmission Date: 20120928
  Serious: No
  Sender: FDA-Public Use
  Company Number: US-BRISTOL-MYERS SQUIBB COMPANY-16578254

PATIENT
  Age: 61 Year
  Sex: Female

DRUGS (5)
  1. KOMBOGLYZE [Suspect]
  2. CRESTOR [Concomitant]
  3. LOSARTAN POTASSIUM [Concomitant]
  4. OMEPRAZOLE [Concomitant]
  5. EFFEXOR [Concomitant]

REACTIONS (1)
  - BLOOD GLUCOSE INCREASED [None]
